FAERS Safety Report 18724919 (Version 2)
Quarter: 2021Q1

REPORT INFORMATION
  Report Type: Spontaneous
  Country: CA (occurrence: CA)
  Receive Date: 20210111
  Receipt Date: 20210115
  Transmission Date: 20210419
  Serious: Yes (Other)
  Sender: FDA-Public Use
  Company Number: CA-JNJFOC-20210105413

PATIENT

DRUGS (20)
  1. REMICADE [Suspect]
     Active Substance: INFLIXIMAB
     Indication: PRODUCT USED FOR UNKNOWN INDICATION
     Route: 042
  2. FOSAMAX [Suspect]
     Active Substance: ALENDRONATE SODIUM
     Indication: PRODUCT USED FOR UNKNOWN INDICATION
     Route: 065
  3. ARAVA [Suspect]
     Active Substance: LEFLUNOMIDE
     Indication: PRODUCT USED FOR UNKNOWN INDICATION
     Route: 065
  4. PHTHALYLSULFATHIAZOLE [Suspect]
     Active Substance: PHTHALYLSULFATHIAZOLE
     Indication: PRODUCT USED FOR UNKNOWN INDICATION
     Route: 065
  5. CORTISONE ACETATE. [Suspect]
     Active Substance: CORTISONE ACETATE
     Indication: PRODUCT USED FOR UNKNOWN INDICATION
     Route: 065
  6. CETIRIZINE HYDROCHLORIDE. [Suspect]
     Active Substance: CETIRIZINE HYDROCHLORIDE
     Indication: PRODUCT USED FOR UNKNOWN INDICATION
     Route: 065
  7. ENBREL [Suspect]
     Active Substance: ETANERCEPT
     Indication: PRODUCT USED FOR UNKNOWN INDICATION
     Route: 058
  8. REACTINE (CETIRIZINE HYDROCHLORIDE) [Suspect]
     Active Substance: CETIRIZINE HYDROCHLORIDE
     Indication: PRODUCT USED FOR UNKNOWN INDICATION
     Route: 048
  9. APO?PREDNISONE [Concomitant]
     Active Substance: PREDNISONE
  10. ORENCIA [Suspect]
     Active Substance: ABATACEPT
     Indication: PRODUCT USED FOR UNKNOWN INDICATION
     Route: 042
  11. RITUXIMAB. [Suspect]
     Active Substance: RITUXIMAB
     Indication: PRODUCT USED FOR UNKNOWN INDICATION
     Route: 042
  12. HYDROXYCHLOROQUINE SULFATE. [Suspect]
     Active Substance: HYDROXYCHLOROQUINE SULFATE
     Indication: PRODUCT USED FOR UNKNOWN INDICATION
     Route: 065
  13. ACTEMRA [Suspect]
     Active Substance: TOCILIZUMAB
     Indication: PRODUCT USED FOR UNKNOWN INDICATION
     Route: 065
  14. PLAQUENIL [HYDROXYCHLOROQUINE PHOSPHATE] [Suspect]
     Active Substance: HYDROXYCHLOROQUINE DIPHOSPHATE
     Indication: PRODUCT USED FOR UNKNOWN INDICATION
     Route: 065
  15. FOLIC ACID. [Suspect]
     Active Substance: FOLIC ACID
     Indication: PRODUCT USED FOR UNKNOWN INDICATION
     Route: 065
  16. HUMIRA [Suspect]
     Active Substance: ADALIMUMAB
     Indication: PRODUCT USED FOR UNKNOWN INDICATION
     Route: 058
  17. PSEUDOEPHEDRINE HYDROCHLORIDE. [Suspect]
     Active Substance: PSEUDOEPHEDRINE HYDROCHLORIDE
     Indication: PRODUCT USED FOR UNKNOWN INDICATION
  18. CIMZIA [Suspect]
     Active Substance: CERTOLIZUMAB PEGOL
     Indication: PRODUCT USED FOR UNKNOWN INDICATION
     Route: 058
  19. METHOTREXATE. [Suspect]
     Active Substance: METHOTREXATE
     Indication: PRODUCT USED FOR UNKNOWN INDICATION
     Route: 065
  20. PREDNISONE. [Suspect]
     Active Substance: PREDNISONE
     Indication: PRODUCT USED FOR UNKNOWN INDICATION
     Route: 065

REACTIONS (8)
  - Pemphigus [Recovered/Resolved]
  - Abdominal discomfort [Recovered/Resolved]
  - Rheumatoid arthritis [Recovered/Resolved]
  - Systemic lupus erythematosus [Recovered/Resolved]
  - Pain [Recovered/Resolved]
  - Contraindicated product administered [Recovered/Resolved]
  - Alopecia [Recovered/Resolved]
  - Drug ineffective [Unknown]
